FAERS Safety Report 8264527-7 (Version None)
Quarter: 2012Q2

REPORT INFORMATION
  Report Type: 
  Country: None (occurrence: None)
  Receive Date: 20120406
  Receipt Date: 20120331
  Transmission Date: 20120825
  Serious: Yes (Disabling, Other)
  Sender: FDA-Public Use
  Company Number: CA-US-EMD SERONO, INC.-7120666

PATIENT
  Sex: Female

DRUGS (1)
  1. SAIZEN [Suspect]
     Indication: IN VITRO FERTILISATION
     Route: 058
     Dates: start: 20120208, end: 20120212

REACTIONS (1)
  - BREAST CANCER [None]
